FAERS Safety Report 9736080 (Version 3)
Quarter: 2014Q1

REPORT INFORMATION
  Report Type: Report from Study
  Country: CA (occurrence: CA)
  Receive Date: 20131206
  Receipt Date: 20140326
  Transmission Date: 20141002
  Serious: Yes (Death)
  Sender: FDA-Public Use
  Company Number: CA-ABBVIE-12P-028-0978382-00

PATIENT
  Age: 47 Year
  Sex: Male
  Weight: 98.52 kg

DRUGS (3)
  1. HUMIRA [Suspect]
     Indication: PSORIASIS
     Route: 058
     Dates: start: 20101202
  2. DIOVAN [Concomitant]
     Indication: HYPERTENSION
     Dosage: 160/25MG QD
     Dates: start: 2004
  3. PANTOPRAZOLE [Concomitant]
     Indication: GASTROOESOPHAGEAL REFLUX DISEASE
     Dates: start: 2006

REACTIONS (1)
  - Death [Fatal]
